FAERS Safety Report 18393907 (Version 2)
Quarter: 2021Q2

REPORT INFORMATION
  Report Type: Report from Study
  Country: None (occurrence: AT)
  Receive Date: 20201016
  Receipt Date: 20210512
  Transmission Date: 20210717
  Serious: Yes (Hospitalization)
  Sender: FDA-Public Use
  Company Number: AT-ABBVIE-20K-009-3606746-00

PATIENT
  Age: 39 Year
  Sex: Male

DRUGS (9)
  1. CALCIVITA [Concomitant]
     Active Substance: CALCIUM\VITAMINS
     Indication: PRODUCT USED FOR UNKNOWN INDICATION
  2. HUMIRA [Suspect]
     Active Substance: ADALIMUMAB
     Indication: CROHN^S DISEASE
     Route: 058
     Dates: start: 20190111, end: 2020
  3. HUMIRA [Suspect]
     Active Substance: ADALIMUMAB
     Route: 058
     Dates: start: 202104
  4. DULOXETINE. [Suspect]
     Active Substance: DULOXETINE
     Indication: MENTAL DISORDER
     Route: 065
     Dates: start: 2021, end: 2021
  5. HUMIRA [Suspect]
     Active Substance: ADALIMUMAB
     Route: 058
     Dates: start: 202101, end: 20210410
  6. PANTOLOC [Concomitant]
     Active Substance: PANTOPRAZOLE SODIUM
     Indication: PRODUCT USED FOR UNKNOWN INDICATION
  7. IBUPROFEN. [Concomitant]
     Active Substance: IBUPROFEN
     Indication: PRODUCT USED FOR UNKNOWN INDICATION
  8. HUMIRA [Suspect]
     Active Substance: ADALIMUMAB
     Route: 058
     Dates: start: 2020, end: 202101
  9. ENTOCORT [Concomitant]
     Active Substance: BUDESONIDE
     Indication: PRODUCT USED FOR UNKNOWN INDICATION

REACTIONS (8)
  - Mental disorder [Unknown]
  - Small intestinal stenosis [Recovered/Resolved]
  - Faecal calprotectin increased [Recovered/Resolved]
  - SARS-CoV-2 antibody test negative [Unknown]
  - Ileus [Recovered/Resolved]
  - Drug intolerance [Unknown]
  - Ileus [Recovered/Resolved]
  - Diarrhoea [Recovered/Resolved]

NARRATIVE: CASE EVENT DATE: 2020
